FAERS Safety Report 14065986 (Version 2)
Quarter: 2017Q4

REPORT INFORMATION
  Report Type: Report from Study
  Country: US (occurrence: US)
  Receive Date: 20171009
  Receipt Date: 20171114
  Transmission Date: 20180321
  Serious: Yes (Hospitalization, Other)
  Sender: FDA-Public Use
  Company Number: US-EXELIXIS-XL18417010727

PATIENT
  Age: 23 Year
  Sex: Female
  Weight: 65.4 kg

DRUGS (1)
  1. XL184 [Suspect]
     Active Substance: CABOZANTINIB
     Indication: NEUROENDOCRINE TUMOUR
     Dosage: 40 MG/M2, QD
     Route: 048
     Dates: start: 20170530, end: 20170920

REACTIONS (3)
  - Non-cardiac chest pain [Not Recovered/Not Resolved]
  - Leukaemia [Not Recovered/Not Resolved]
  - Pleural effusion [Not Recovered/Not Resolved]

NARRATIVE: CASE EVENT DATE: 20170920
